FAERS Safety Report 12325960 (Version 2)
Quarter: 2024Q4

REPORT INFORMATION
  Report Type: Report from Study
  Country: US (occurrence: US)
  Receive Date: 20160503
  Receipt Date: 20241107
  Transmission Date: 20250115
  Serious: Yes (Disabling, Other)
  Sender: ROCHE
  Company Number: US-ROCHE-1750395

PATIENT
  Sex: Female

DRUGS (1)
  1. NUTROPIN [Suspect]
     Active Substance: SOMATROPIN
     Indication: Product used for unknown indication
     Route: 065

REACTIONS (4)
  - Road traffic accident [Unknown]
  - Spinal column injury [Unknown]
  - Brain injury [Unknown]
  - Disability [Unknown]
